FAERS Safety Report 7610019-5 (Version None)
Quarter: 2011Q3

REPORT INFORMATION
  Report Type: 
  Country: None (occurrence: None)
  Receive Date: 20110714
  Receipt Date: 20110215
  Transmission Date: 20111222
  Serious: No
  Sender: FDA-Public Use
  Company Number: US-BAYER-2011-047557

PATIENT
  Age: 82 Year
  Sex: Male

DRUGS (1)
  1. FINACEA [Suspect]
     Indication: ROSACEA
     Dosage: UNK UNK, BID
     Route: 061
     Dates: start: 19970101, end: 20110213

REACTIONS (4)
  - ERYTHEMA [None]
  - HAEMORRHAGE [None]
  - RASH PUSTULAR [None]
  - ACNE [None]
